FAERS Safety Report 5398879-2 (Version None)
Quarter: 2007Q3

REPORT INFORMATION
  Report Type: 
  Country: None (occurrence: None)
  Receive Date: 20070727
  Receipt Date: 20070724
  Transmission Date: 20080115
  Serious: Yes (Other)
  Sender: FDA-Public Use
  Company Number: PHEH2007US06031

PATIENT
  Age: 52 Year
  Sex: Female
  Weight: 81.179 kg

DRUGS (5)
  1. ZOMETA [Suspect]
     Indication: METASTASES TO BONE
     Dosage: 4 MG MONTHLY
     Route: 042
     Dates: start: 20020501, end: 20020701
  2. ZOMETA [Suspect]
     Dosage: 4 MG MONTHLY
     Route: 042
     Dates: start: 20050301, end: 20061101
  3. AREDIA [Suspect]
     Indication: METASTASES TO BONE
     Dosage: 90 MG MONTHLY
     Route: 042
     Dates: start: 20020801, end: 20050501
  4. THALIDOMIDE [Concomitant]
     Dosage: 100 MG, UNK
  5. STEROIDS NOS [Concomitant]
     Dosage: 20 MG FOUR DAYS ON THEN OFF

REACTIONS (10)
  - BONE DISORDER [None]
  - DENTAL OPERATION [None]
  - ERYTHEMA [None]
  - IMPAIRED HEALING [None]
  - ORAL DISORDER [None]
  - OSTEOMYELITIS [None]
  - OSTEONECROSIS [None]
  - PAIN [None]
  - SWELLING [None]
  - TOOTH FRACTURE [None]
